FAERS Safety Report 8515890-0 (Version None)
Quarter: 2012Q3

REPORT INFORMATION
  Report Type: 
  Country: None (occurrence: None)
  Receive Date: 20120717
  Receipt Date: 20120716
  Transmission Date: 20120928
  Serious: Yes (Other)
  Sender: FDA-Public Use
  Company Number: PHFR2012GB003333

PATIENT
  Age: 39 Year
  Sex: Female

DRUGS (1)
  1. ZOMETA [Suspect]
     Indication: HYPERCALCAEMIA

REACTIONS (2)
  - HYPERCALCAEMIA [None]
  - MULTIPLE MYELOMA [None]
